FAERS Safety Report 9525275 (Version 2)
Quarter: 2014Q1

REPORT INFORMATION
  Report Type: Spontaneous
  Country: JP (occurrence: JP)
  Receive Date: 20130916
  Receipt Date: 20140321
  Transmission Date: 20141002
  Serious: Yes (Life-Threatening)
  Sender: FDA-Public Use
  Company Number: JP-ASTRAZENECA-2013SE69076

PATIENT
  Age: 81 Year
  Sex: Male
  Weight: 49 kg

DRUGS (11)
  1. XYLOCAINE [Suspect]
     Indication: EPIDURAL ANAESTHESIA
     Route: 008
  2. XYLOCAINE [Suspect]
     Indication: EPIDURAL ANAESTHESIA
     Route: 008
  3. DIPRIVAN [Suspect]
     Indication: GENERAL ANAESTHESIA
     Route: 042
  4. FENTANYL [Suspect]
     Indication: EPIDURAL ANAESTHESIA
     Dosage: 100 MCG
     Route: 008
  5. REMIFENTANIL [Suspect]
     Indication: GENERAL ANAESTHESIA
     Dosage: INDUCTION OF GENERAL ANAESTHESIA: 0.5 MCG/KG/MIN
     Route: 042
  6. REMIFENTANIL [Suspect]
     Indication: MAINTENANCE OF ANAESTHESIA
     Dosage: INDUCTION OF GENERAL ANAESTHESIA: 0.5 MCG/KG/MIN
     Route: 042
  7. REMIFENTANIL [Suspect]
     Indication: GENERAL ANAESTHESIA
     Dosage: MAINTENANCE OF ANAESTHESIA: 0.25 MCG/KG/MIN
     Route: 042
  8. REMIFENTANIL [Suspect]
     Indication: MAINTENANCE OF ANAESTHESIA
     Dosage: MAINTENANCE OF ANAESTHESIA: 0.25 MCG/KG/MIN
     Route: 042
  9. ROCURONIUM [Suspect]
     Indication: GENERAL ANAESTHESIA
     Route: 042
  10. SEVOFLURANE [Suspect]
     Indication: MAINTENANCE OF ANAESTHESIA
     Dosage: 1-1.5%
     Route: 055
  11. LEVOBUPIVACAINE [Suspect]
     Dosage: 4 ML/H
     Route: 008

REACTIONS (2)
  - Sick sinus syndrome [Recovered/Resolved]
  - Cardiac arrest [Recovered/Resolved]
